FAERS Safety Report 12396452 (Version 1)
Quarter: 2016Q2

REPORT INFORMATION
  Report Type: Spontaneous
  Country: US (occurrence: None)
  Receive Date: 20160523
  Receipt Date: 20160523
  Transmission Date: 20160815
  Serious: Yes (Hospitalization)
  Sender: FDA-Public Use
  Company Number: None

PATIENT
  Age: 74 Year
  Sex: Female
  Weight: 78 kg

DRUGS (1)
  1. IBRUTINIB, 140MG [Suspect]
     Active Substance: IBRUTINIB
     Indication: CHRONIC LYMPHOCYTIC LEUKAEMIA
     Route: 048

REACTIONS (5)
  - Pancytopenia [None]
  - Toxicity to various agents [None]
  - Aplastic anaemia [None]
  - Pyrexia [None]
  - Bone marrow failure [None]

NARRATIVE: CASE EVENT DATE: 20150409
